FAERS Safety Report 6096859-5 (Version None)
Quarter: 2009Q1

REPORT INFORMATION
  Report Type: 
  Country: None (occurrence: None)
  Receive Date: 20090225
  Receipt Date: 20090210
  Transmission Date: 20090719
  Serious: Yes (Death)
  Sender: FDA-Public Use
  Company Number: 2009BM00021

PATIENT
  Sex: Female

DRUGS (1)
  1. NAGLAZYME [Suspect]
     Indication: MUCOPOLYSACCHARIDOSIS VI
     Dosage: 1 MG/KG; QW; IVDRP
     Route: 041
     Dates: start: 20070110, end: 20080813

REACTIONS (3)
  - CARDIOPULMONARY FAILURE [None]
  - DISEASE PROGRESSION [None]
  - MUCOPOLYSACCHARIDOSIS VI [None]
